FAERS Safety Report 9778656 (Version 1)
Quarter: 2013Q4

REPORT INFORMATION
  Report Type: Spontaneous
  Country: US (occurrence: None)
  Receive Date: 20131219
  Receipt Date: 20131219
  Transmission Date: 20140711
  Serious: Yes (Other)
  Sender: FDA-Public Use
  Company Number: 2013-US-004318

PATIENT
  Age: 45 Year
  Sex: Male

DRUGS (1)
  1. PRIALT [Suspect]
     Indication: POST LAMINECTOMY SYNDROME
     Dosage: 2.5 UG/ML, BOLUS, INTRATHECAL
     Route: 037
     Dates: start: 201305, end: 201305

REACTIONS (1)
  - Grand mal convulsion [None]
